FAERS Safety Report 6988574-8 (Version None)
Quarter: 2010Q3

REPORT INFORMATION
  Report Type: 
  Country: None (occurrence: None)
  Receive Date: 20100916
  Receipt Date: 20100914
  Transmission Date: 20110219
  Serious: Yes (Hospitalization)
  Sender: FDA-Public Use
  Company Number: FR-BRISTOL-MYERS SQUIBB COMPANY-15286628

PATIENT
  Age: 89 Year
  Sex: Female

DRUGS (13)
  1. COUMADIN [Suspect]
     Indication: ATRIAL FLUTTER
     Dosage: DAILY IN THE MORNING
     Route: 048
     Dates: start: 20100115, end: 20100706
  2. CICLETANINE [Concomitant]
     Indication: HYPERTENSION
     Dosage: 1DF: 50MG ONE CAPSULE DAILY
     Route: 048
  3. CORTANCYL [Concomitant]
     Indication: ASTHMA
     Dosage: 1DF: 20MG ONE TABLET DAILY
     Route: 048
     Dates: start: 20100315
  4. TRIATEC [Concomitant]
     Indication: HYPERTENSION
     Dosage: 1DF: 5MG ONE TABLET
     Route: 048
  5. KAYEXALATE [Concomitant]
     Indication: HYPERKALAEMIA
     Dosage: 1DF: 1 TABLET
     Route: 048
     Dates: end: 20100709
  6. NEXIUM [Concomitant]
     Dosage: 1DF: 1 TABLET
     Route: 048
  7. BRICANYL [Concomitant]
     Indication: ASTHMA
     Route: 055
     Dates: start: 20100315
  8. SERETIDE [Concomitant]
     Indication: ASTHMA
     Dosage: 1DF: MICROGRAMMES/DOSES 2 INHALATIONS
     Route: 055
     Dates: start: 20100201
  9. ELISOR TABS [Concomitant]
     Indication: HYPERCHOLESTEROLAEMIA
     Dosage: 1DF: 20MG TABLET
     Route: 048
  10. DILTIAZEM HCL [Concomitant]
     Indication: HYPERTENSION
     Route: 048
  11. CORDARONE [Concomitant]
     Indication: ATRIAL FLUTTER
     Dosage: 1DF: 1 TABLET
     Route: 048
     Dates: start: 20100115
  12. LASIX [Concomitant]
     Dosage: 1DF: 40 MG TABLET
     Route: 048
     Dates: start: 20100315
  13. IMOVANE [Concomitant]
     Route: 048
     Dates: end: 20100709

REACTIONS (7)
  - ANAEMIA [None]
  - DECREASED APPETITE [None]
  - FATIGUE [None]
  - INTERNATIONAL NORMALISED RATIO DECREASED [None]
  - INTERNATIONAL NORMALISED RATIO INCREASED [None]
  - MELAENA [None]
  - NAUSEA [None]
